FAERS Safety Report 5311397-2 (Version None)
Quarter: 2007Q2

REPORT INFORMATION
  Report Type: 
  Country: None (occurrence: None)
  Receive Date: 20070430
  Receipt Date: 20070420
  Transmission Date: 20071010
  Serious: Yes (Hospitalization, Other)
  Sender: FDA-Public Use
  Company Number: BR-AVENTIS-200711335EU

PATIENT
  Age: 67 Year
  Sex: Female

DRUGS (5)
  1. ENOXAPARIN SODIUM [Suspect]
     Route: 058
     Dates: start: 20070205, end: 20070215
  2. CAPTOPRIL [Concomitant]
     Dates: start: 20040101
  3. HYDROCHLOROTHIAZIDE [Concomitant]
     Dates: start: 20040101
  4. IMIPRAMINE [Concomitant]
     Indication: DEPRESSION
     Dates: start: 19920101
  5. VENALOT                            /00021901/ [Concomitant]
     Route: 048
     Dates: start: 20010101, end: 20070203

REACTIONS (1)
  - HAEMATOMA INFECTION [None]
